FAERS Safety Report 9552058 (Version 1)
Quarter: 2013Q3

REPORT INFORMATION
  Report Type: Spontaneous
  Country: US (occurrence: None)
  Receive Date: 20130724
  Receipt Date: 20130724
  Transmission Date: 20140515
  Serious: Yes (Other)
  Sender: FDA-Public Use
  Company Number: PHEH2013US003009

PATIENT
  Age: 59 Year
  Sex: Female

DRUGS (4)
  1. VALSARTAN + HCT [Suspect]
  2. BABY ASPIRIN (ACETYLSALICYLIC ACID) [Concomitant]
  3. SIMVASTATIN (SIMVASTATIN) [Concomitant]
  4. ALLERGY MEDICATION (NO INGREDIENTS/ SUBSTANCES) [Concomitant]

REACTIONS (2)
  - Dehydration [None]
  - Thirst [None]
